FAERS Safety Report 17551477 (Version 4)
Quarter: 2020Q2

REPORT INFORMATION
  Report Type: Spontaneous
  Country: JP (occurrence: JP)
  Receive Date: 20200317
  Receipt Date: 20200410
  Transmission Date: 20200713
  Serious: Yes (Other)
  Sender: FDA-Public Use
  Company Number: NVSC2020JP075056

PATIENT
  Age: 91 Year
  Sex: Female

DRUGS (1)
  1. RIVASTACH [Suspect]
     Active Substance: RIVASTIGMINE
     Indication: DEMENTIA ALZHEIMER^S TYPE
     Dosage: UNK (4 PATCHES OF A 9-MG/DAY FORMULA AND 5 OF A 13.5-MG/DAY FORMULA)
     Route: 062

REACTIONS (9)
  - Blood pressure increased [Unknown]
  - Blood cholinesterase decreased [Recovering/Resolving]
  - Headache [Recovering/Resolving]
  - Miosis [Unknown]
  - Product administration error [Unknown]
  - Dizziness [Recovering/Resolving]
  - Cholinergic syndrome [Recovering/Resolving]
  - Tachycardia [Unknown]
  - Incorrect dose administered [Recovering/Resolving]
